FAERS Safety Report 13185581 (Version 1)
Quarter: 2017Q1

REPORT INFORMATION
  Report Type: Spontaneous
  Country: US (occurrence: US)
  Receive Date: 20170203
  Receipt Date: 20170203
  Transmission Date: 20170428
  Serious: Yes (Hospitalization)
  Sender: FDA-Public Use
  Company Number: US-BRACCO-014191

PATIENT
  Sex: Male

DRUGS (1)
  1. ISOVUE-M [Suspect]
     Active Substance: IOPAMIDOL
     Indication: SPINAL MYELOGRAM
     Dates: start: 20161116, end: 20161116

REACTIONS (2)
  - Brain oedema [Recovered/Resolved]
  - Brain herniation [Recovered/Resolved]

NARRATIVE: CASE EVENT DATE: 20161117
